FAERS Safety Report 5961683-8 (Version None)
Quarter: 2008Q4

REPORT INFORMATION
  Report Type: 
  Country: None (occurrence: None)
  Receive Date: 20081121
  Receipt Date: 20081113
  Transmission Date: 20090506
  Serious: Yes (Hospitalization)
  Sender: FDA-Public Use
  Company Number: DE-ASTRAZENECA-2008PK02325

PATIENT
  Sex: Male
  Weight: 80 kg

DRUGS (2)
  1. ZOLADEX [Suspect]
     Indication: PROSTATE CANCER
     Route: 058
     Dates: start: 20080902
  2. CASODEX [Concomitant]
     Indication: PROSTATE CANCER
     Route: 048

REACTIONS (2)
  - THROMBOPHLEBITIS [None]
  - THROMBOSIS [None]
